FAERS Safety Report 6817720-1 (Version None)
Quarter: 2010Q3

REPORT INFORMATION
  Report Type: 
  Country: None (occurrence: None)
  Receive Date: 20100706
  Receipt Date: 20100624
  Transmission Date: 20110219
  Serious: Yes (Other)
  Sender: FDA-Public Use
  Company Number: US-PFIZER INC-2010027528

PATIENT
  Sex: Female

DRUGS (1)
  1. SUTENT [Suspect]
     Indication: METASTATIC RENAL CELL CARCINOMA
     Dosage: 50 MG, DAILY X 28 DAYS Q 42 DAYS
     Route: 048
     Dates: start: 20100206

REACTIONS (7)
  - ASTHENIA [None]
  - BLOOD MAGNESIUM DECREASED [None]
  - DEHYDRATION [None]
  - HAEMOGLOBIN DECREASED [None]
  - HYPOTENSION [None]
  - PLATELET COUNT DECREASED [None]
  - WHITE BLOOD CELL COUNT DECREASED [None]
